FAERS Safety Report 14202705 (Version 1)
Quarter: 2017Q4

REPORT INFORMATION
  Report Type: Spontaneous
  Country: US (occurrence: US)
  Receive Date: 20171118
  Receipt Date: 20171118
  Transmission Date: 20180321
  Serious: Yes (Hospitalization)
  Sender: FDA-Public Use
  Company Number: US-ACCORD-061131

PATIENT
  Age: 44 Year
  Sex: Male

DRUGS (2)
  1. RISPERIDONE. [Interacting]
     Active Substance: RISPERIDONE
     Indication: SCHIZOAFFECTIVE DISORDER
     Dosage: BIWEEKLY DEPOT RISPERIDONE AND DAILY ORAL DOSE OF 2 MG,??MOST RECENT 50 MG DEPOT INJECTION
     Route: 048
  2. CLOZAPINE. [Suspect]
     Active Substance: CLOZAPINE
     Indication: SCHIZOAFFECTIVE DISORDER
     Dosage: TITRATED FROM 25 MG DAILY ON D-1 TO 125 MG IN THE MORNI AND 75 MG IN THE EVE (200 MG/D) ON DAY15

REACTIONS (2)
  - Oromandibular dystonia [Recovered/Resolved]
  - Drug interaction [Unknown]
